FAERS Safety Report 4927120-7 (Version None)
Quarter: 2006Q1

REPORT INFORMATION
  Report Type: 
  Country: None (occurrence: None)
  Receive Date: 20060228
  Receipt Date: 20060222
  Transmission Date: 20060701
  Serious: Yes (Death, Hospitalization, Other)
  Sender: FDA-Public Use
  Company Number: PHBS2006GB02986

PATIENT
  Age: 72 Year
  Sex: Male

DRUGS (4)
  1. AZATHIOPRINE [Suspect]
     Indication: RENAL TRANSPLANT
     Dosage: 2 MG/KG/D
     Route: 065
  2. PREDNISOLONE [Suspect]
     Indication: RENAL TRANSPLANT
     Dosage: 1 MG/3KG/D
     Route: 065
  3. NEORAL [Suspect]
     Indication: RENAL TRANSPLANT
     Dosage: 8 MG/KG/D
     Route: 065
  4. NEORAL [Suspect]
     Dosage: 4 MG/KG/D
     Route: 065

REACTIONS (21)
  - ABDOMINAL MASS [None]
  - ABSCESS [None]
  - ACTINOMYCOSIS [None]
  - AORTIC ANEURYSM RUPTURE [None]
  - ARTERIOSCLEROSIS [None]
  - BLADDER NEOPLASM SURGERY [None]
  - C-REACTIVE PROTEIN INCREASED [None]
  - CHILLS [None]
  - COLONIC POLYP [None]
  - CYTOMEGALOVIRUS ANTIBODY POSITIVE [None]
  - DIVERTICULUM [None]
  - GROIN PAIN [None]
  - LARGE INTESTINE ANASTOMOSIS [None]
  - MASS EXCISION [None]
  - NIGHT SWEATS [None]
  - POLYPECTOMY [None]
  - PYREXIA [None]
  - RED BLOOD CELL SEDIMENTATION RATE INCREASED [None]
  - RED BLOOD CELLS URINE POSITIVE [None]
  - TRANSITIONAL CELL CARCINOMA [None]
  - WEIGHT DECREASED [None]
